FAERS Safety Report 20130875 (Version 1)
Quarter: 2021Q4

REPORT INFORMATION
  Report Type: Spontaneous
  Country: US (occurrence: US)
  Receive Date: 20211130
  Receipt Date: 20211130
  Transmission Date: 20220303
  Serious: No
  Sender: FDA-Public Use
  Company Number: US-PERRIGO-21US000861

PATIENT
  Age: 34 Year
  Sex: Female
  Weight: 108.84 kg

DRUGS (5)
  1. NICOTINE POLACRILEX [Suspect]
     Active Substance: NICOTINE
     Indication: Smoking cessation therapy
     Dosage: 4 MG, 15 TO 20 TIMES DAILY
     Route: 002
     Dates: start: 201809, end: 201901
  2. NICOTINE POLACRILEX [Suspect]
     Active Substance: NICOTINE
     Indication: Smoking cessation therapy
     Dosage: 2 MG, 20 TO 30 TIMES DAILY
     Route: 002
     Dates: start: 202004
  3. LEXAPRO [Concomitant]
     Active Substance: ESCITALOPRAM OXALATE
     Indication: Depression
     Dosage: 10 MG, UNKNOWN
     Route: 065
  4. SEROQUEL [Concomitant]
     Active Substance: QUETIAPINE FUMARATE
     Indication: Bipolar disorder
     Dosage: 250 MG, UNKNOWN
     Route: 065
  5. FLUPHENAZINE [Concomitant]
     Active Substance: FLUPHENAZINE
     Indication: Bipolar disorder
     Dosage: 10 MG, UNKNOWN
     Route: 065

REACTIONS (3)
  - Nicotine dependence [Not Recovered/Not Resolved]
  - Drug ineffective [Unknown]
  - Overdose [Not Recovered/Not Resolved]

NARRATIVE: CASE EVENT DATE: 20180901
